FAERS Safety Report 20309789 (Version 1)
Quarter: 2022Q1

REPORT INFORMATION
  Report Type: Report from Study
  Country: RU (occurrence: RU)
  Receive Date: 20220107
  Receipt Date: 20220107
  Transmission Date: 20220423
  Serious: Yes (Death, Hospitalization)
  Sender: FDA-Public Use
  Company Number: RU-CELGENE-RUS-20220101011

PATIENT
  Age: 46 Year
  Sex: Male
  Weight: 72 kg

DRUGS (21)
  1. POMALIDOMIDE [Suspect]
     Active Substance: POMALIDOMIDE
     Indication: Plasma cell myeloma
     Route: 048
  2. MELPHALAN FLUFENAMIDE HYDROCHLORIDE [Suspect]
     Active Substance: MELPHALAN FLUFENAMIDE HYDROCHLORIDE
     Indication: Plasma cell myeloma
     Dosage: 1.4286 MILLIGRAM
     Route: 042
     Dates: start: 20190403, end: 20190403
  3. DEXAMETHASONE [Suspect]
     Active Substance: DEXAMETHASONE
     Indication: Plasma cell myeloma
     Route: 048
     Dates: start: 20190403, end: 20190424
  4. COTRIMOXAZOLE [Concomitant]
     Active Substance: SULFAMETHOXAZOLE\TRIMETHOPRIM
     Indication: Prophylaxis
     Dosage: 45.7143 MILLIGRAM
     Route: 048
     Dates: start: 20190403, end: 20190426
  5. KETOROLAC TROMETHAMINE [Concomitant]
     Active Substance: KETOROLAC TROMETHAMINE
     Indication: Product used for unknown indication
     Dosage: 30 MILLIGRAM
     Route: 041
  6. OMEPRAZOLE [Concomitant]
     Active Substance: OMEPRAZOLE
     Indication: Product used for unknown indication
     Dosage: 20 MILLIGRAM
     Route: 048
     Dates: start: 20190403
  7. Tramadolum [Concomitant]
     Indication: Pancreatitis chronic
     Dosage: 2 MILLILITER
     Route: 065
     Dates: start: 20190426
  8. Tramadolum [Concomitant]
     Indication: Bone pain
  9. Solution Natri chloride [Concomitant]
     Indication: Prophylaxis
     Dosage: 1500 MILLILITER
     Route: 065
  10. LACTULOSE [Concomitant]
     Active Substance: LACTULOSE
     Indication: Constipation
     Dosage: 30 MILLILITER
     Route: 065
     Dates: start: 20190426, end: 20190426
  11. ACYCLOVIR [Concomitant]
     Active Substance: ACYCLOVIR
     Indication: Herpes simplex
     Dosage: 200 MILLIGRAM
     Route: 065
     Dates: start: 20190429, end: 20190512
  12. FILGRASTIM [Concomitant]
     Active Substance: FILGRASTIM
     Indication: Neutrophil count decreased
     Dosage: 300 MICROGRAM
     Route: 065
     Dates: start: 20190502, end: 20190502
  13. FILGRASTIM [Concomitant]
     Active Substance: FILGRASTIM
     Dosage: 300 MICROGRAM
     Route: 065
     Dates: start: 20190506, end: 20190506
  14. platelets transfusion [Concomitant]
     Indication: Platelet count decreased
     Dosage: 200 MILLILITER
     Route: 041
     Dates: start: 20190429
  15. platelets transfusion [Concomitant]
     Dosage: 200 MILLILITER
     Route: 041
     Dates: start: 20190502, end: 20190502
  16. platelets transfusion [Concomitant]
     Dosage: 130 MILLILITER
     Route: 041
     Dates: start: 20190503, end: 20190504
  17. platelets transfusion [Concomitant]
     Dosage: 140 MILLILITER
     Route: 041
     Dates: start: 20190507, end: 20190508
  18. platelets transfusion [Concomitant]
     Dosage: 150 MILLILITER
     Route: 041
     Dates: start: 20190512, end: 20190512
  19. RBC transfusion [Concomitant]
     Indication: Anaemia
     Dosage: 200 MILLILITER
     Route: 041
     Dates: end: 20190523
  20. FAMOTIDINE [Concomitant]
     Active Substance: FAMOTIDINE
     Indication: Prophylaxis
     Dosage: 20 MILLIGRAM
     Route: 041
     Dates: start: 20190426, end: 20190514
  21. ENALAPRIL [Concomitant]
     Active Substance: ENALAPRIL
     Indication: Prophylaxis
     Dosage: 5 MILLIGRAM
     Route: 065
     Dates: start: 20190506, end: 20190513

REACTIONS (1)
  - Multiple organ dysfunction syndrome [Fatal]

NARRATIVE: CASE EVENT DATE: 20190515
